FAERS Safety Report 22077159 (Version 2)
Quarter: 2023Q2

REPORT INFORMATION
  Report Type: Spontaneous
  Country: US (occurrence: US)
  Receive Date: 20230309
  Receipt Date: 20230522
  Transmission Date: 20230722
  Serious: Yes (Other)
  Sender: FDA-Public Use
  Company Number: US-BEH-2023156063

PATIENT
  Sex: Female

DRUGS (1)
  1. HIZENTRA [Suspect]
     Active Substance: HUMAN IMMUNOGLOBULIN G
     Indication: Selective IgG subclass deficiency
     Dosage: 4 GRAM, QW
     Route: 058
     Dates: start: 201902, end: 20230228

REACTIONS (3)
  - Drug ineffective [Unknown]
  - Injection site bruising [Unknown]
  - Injection site pain [Unknown]
